FAERS Safety Report 6114398-X (Version None)
Quarter: 2009Q1

REPORT INFORMATION
  Report Type: 
  Country: None (occurrence: None)
  Receive Date: 20090313
  Receipt Date: 20090304
  Transmission Date: 20090719
  Serious: Yes (Other)
  Sender: FDA-Public Use
  Company Number: US-JNJFOC-20090301502

PATIENT
  Sex: Female
  Weight: 67.59 kg

DRUGS (5)
  1. ULTRAM [Suspect]
     Indication: PAIN
     Route: 048
  2. ELMIRON [Concomitant]
     Indication: BLADDER DISORDER
     Route: 048
  3. CYMBALTA [Concomitant]
     Indication: DEPRESSION
     Route: 048
  4. ENABLEX [Concomitant]
     Indication: BLADDER DISORDER
     Route: 048
  5. PERCOCET [Concomitant]
     Indication: PAIN
     Dosage: AS NEEDED
     Route: 048

REACTIONS (2)
  - DYSPHAGIA [None]
  - DYSPNOEA [None]
